FAERS Safety Report 8847511 (Version 1)
Quarter: 2012Q4

REPORT INFORMATION
  Report Type: 
  Country: FR (occurrence: FR)
  Receive Date: 20121018
  Receipt Date: 20121018
  Transmission Date: 20130627
  Serious: Yes (Death, Hospitalization, Other)
  Sender: FDA-Public Use
  Company Number: FR-ELI_LILLY_AND_COMPANY-FR201210004575

PATIENT
  Age: 59 Year
  Sex: Male
  Weight: 59 kg

DRUGS (11)
  1. PEMETREXED [Suspect]
     Dosage: UNK
     Route: 042
     Dates: start: 20111128
  2. TARCEVA [Concomitant]
     Indication: NON-SMALL CELL LUNG CANCER
     Dosage: 150 mg, qd
     Dates: start: 20110929
  3. NEURONTIN [Concomitant]
     Dosage: UNK
     Dates: start: 2011
  4. LAROXYL [Concomitant]
     Dosage: UNK
     Dates: start: 2011
  5. RIVOTRIL [Concomitant]
     Dosage: UNK
     Dates: start: 2011
  6. CITALOPRAM [Concomitant]
     Dosage: 2 g, UNK
  7. MULTIVITAMINS W/MINERALS [Concomitant]
     Dosage: UNK
  8. TRACE ELEMENTS [Concomitant]
  9. VITAMIN B1 AND B6 [Concomitant]
  10. VITAMIN C [Concomitant]
     Dosage: UNK
  11. ESOMEPRAZOLE [Concomitant]
     Dosage: 20 mg, qd

REACTIONS (3)
  - Jaundice [Fatal]
  - Klebsiella sepsis [Not Recovered/Not Resolved]
  - Renal failure [Not Recovered/Not Resolved]
